FAERS Safety Report 7272223-8 (Version None)
Quarter: 2011Q1

REPORT INFORMATION
  Report Type: 
  Country: None (occurrence: None)
  Receive Date: 20110203
  Receipt Date: 20110121
  Transmission Date: 20110831
  Serious: Yes (Other)
  Sender: FDA-Public Use
  Company Number: PHHY2010FR75814

PATIENT
  Sex: Female
  Weight: 52 kg

DRUGS (5)
  1. ACLASTA [Suspect]
     Indication: OSTEOPOROSIS
     Dosage: UNK
     Dates: start: 20101011
  2. SERETIDE [Concomitant]
     Indication: ASTHMA
     Dosage: UNK
  3. VENTOLIN [Concomitant]
     Indication: ASTHMA
     Dosage: UNK
  4. UVEDOSE [Concomitant]
  5. INHALATION [Concomitant]
     Indication: ASTHMA

REACTIONS (16)
  - EYELID IRRITATION [None]
  - LACRIMATION INCREASED [None]
  - CHEST PAIN [None]
  - FUNGAL INFECTION [None]
  - FALL [None]
  - NAUSEA [None]
  - EYE PAIN [None]
  - ABDOMINAL PAIN [None]
  - EYELID PAIN [None]
  - EYELID OEDEMA [None]
  - PHOTOPHOBIA [None]
  - LOSS OF CONSCIOUSNESS [None]
  - MALAISE [None]
  - PAIN [None]
  - EYE INFLAMMATION [None]
  - OCULAR HYPERAEMIA [None]
